FAERS Safety Report 13150749 (Version 1)
Quarter: 2017Q1

REPORT INFORMATION
  Report Type: Spontaneous
  Country: IN (occurrence: IN)
  Receive Date: 20170125
  Receipt Date: 20170125
  Transmission Date: 20170428
  Serious: Yes (Other)
  Sender: FDA-Public Use
  Company Number: IN-GLAXOSMITHKLINE-IN2017GSK009505

PATIENT
  Age: 35 Year
  Sex: Female

DRUGS (3)
  1. NEVIRAPINE. [Suspect]
     Active Substance: NEVIRAPINE
     Indication: HIV INFECTION
  2. LAMIVUDINE. [Suspect]
     Active Substance: LAMIVUDINE
     Indication: HIV INFECTION
  3. ZIDOVUDINE. [Suspect]
     Active Substance: ZIDOVUDINE
     Indication: HIV INFECTION

REACTIONS (7)
  - Gangrene [Unknown]
  - Pain in extremity [Unknown]
  - Skin discolouration [Unknown]
  - Peripheral artery occlusion [Unknown]
  - Peripheral ischaemia [Unknown]
  - Toe amputation [Unknown]
  - Red blood cell sedimentation rate increased [Unknown]
